FAERS Safety Report 4942960-6 (Version None)
Quarter: 2006Q1

REPORT INFORMATION
  Report Type: 
  Country: None (occurrence: None)
  Receive Date: 20060309
  Receipt Date: 20060227
  Transmission Date: 20060701
  Serious: Yes (Hospitalization)
  Sender: FDA-Public Use
  Company Number: 2006-139101-NL

PATIENT
  Age: 63 Year
  Sex: Male

DRUGS (6)
  1. MIRTAZAPINE [Suspect]
     Dosage: 3 DF
     Route: 048
     Dates: end: 20060101
  2. MEPRONIZINE [Suspect]
     Dosage: DF
     Dates: start: 20060101
  3. COTAREG ^NOVARTIS^ [Suspect]
     Dosage: 80 MG
     Route: 048
  4. HALOPERIDOL [Suspect]
     Dosage: DF
     Route: 011
  5. ALPRAZOLAM [Suspect]
     Dosage: DF
     Route: 048
     Dates: start: 20060101
  6. UROXATRAL [Suspect]
     Dosage: 5 MG
     Route: 048

REACTIONS (2)
  - FALL [None]
  - ORTHOSTATIC HYPOTENSION [None]
